FAERS Safety Report 12650698 (Version 1)
Quarter: 2016Q3

REPORT INFORMATION
  Report Type: Spontaneous
  Country: BR (occurrence: BR)
  Receive Date: 20160815
  Receipt Date: 20160815
  Transmission Date: 20161109
  Serious: Yes (Death)
  Sender: FDA-Public Use
  Company Number: US-ASTRAZENECA-2016SE87320

PATIENT
  Age: 15 Month

DRUGS (1)
  1. SYNAGIS [Suspect]
     Active Substance: PALIVIZUMAB
     Indication: RESPIRATORY SYNCYTIAL VIRUS INFECTION
     Dosage: 15.0MG/KG UNKNOWN
     Route: 030

REACTIONS (3)
  - Pneumonia [Fatal]
  - Respiratory syncytial virus infection [Unknown]
  - Cerebral palsy [Fatal]
